FAERS Safety Report 5030565-0 (Version None)
Quarter: 2006Q2

REPORT INFORMATION
  Report Type: 
  Country: None (occurrence: None)
  Receive Date: 20060615
  Receipt Date: 20060608
  Transmission Date: 20061013
  Serious: Yes (Hospitalization, Other)
  Sender: FDA-Public Use
  Company Number: 2006073340

PATIENT
  Age: 68 Year
  Sex: Male
  Weight: 110.2241 kg

DRUGS (6)
  1. LIPITOR [Suspect]
     Indication: BLOOD CHOLESTEROL INCREASED
     Dosage: 20 MG (20 MG, DAILY), ORAL
     Route: 048
  2. NORVASC [Suspect]
     Indication: ILL-DEFINED DISORDER
  3. TOPROL-XL [Concomitant]
  4. COZAAR [Concomitant]
  5. HYZAAR [Concomitant]
  6. BABYPRIN (ACETYLSALICYLIC ACID) [Concomitant]

REACTIONS (7)
  - HEPATIC ENZYME ABNORMAL [None]
  - INSOMNIA [None]
  - NERVE INJURY [None]
  - NERVOUSNESS [None]
  - OEDEMA PERIPHERAL [None]
  - PLATELET COUNT INCREASED [None]
  - WHITE BLOOD CELL COUNT INCREASED [None]
